FAERS Safety Report 6361587-5 (Version None)
Quarter: 2009Q3

REPORT INFORMATION
  Report Type: 
  Country: None (occurrence: None)
  Receive Date: 20090918
  Receipt Date: 20090702
  Transmission Date: 20100115
  Serious: Yes (Death, Other)
  Sender: FDA-Public Use
  Company Number: PHBS2007JP15089

PATIENT
  Sex: Female
  Weight: 48 kg

DRUGS (2)
  1. ZOMETA [Suspect]
     Indication: METASTASES TO BONE
     Dosage: 4 MG, QMO
     Route: 041
     Dates: start: 20050501, end: 20080304
  2. XELODA [Suspect]
     Indication: BREAST CANCER RECURRENT
     Dosage: 600MG/DAY
     Route: 048
     Dates: start: 20050501

REACTIONS (6)
  - GINGIVAL PAIN [None]
  - GINGIVAL SWELLING [None]
  - OSTEOMYELITIS [None]
  - OSTEONECROSIS [None]
  - TOOTH EXTRACTION [None]
  - TOOTHACHE [None]
